FAERS Safety Report 17696696 (Version 6)
Quarter: 2022Q3

REPORT INFORMATION
  Report Type: Spontaneous
  Country: CA (occurrence: CA)
  Receive Date: 20200423
  Receipt Date: 20220708
  Transmission Date: 20221026
  Serious: Yes (Other)
  Sender: FDA-Public Use
  Company Number: CA-GLAXOSMITHKLINE-CA2020AMR066928

PATIENT

DRUGS (4)
  1. ZEJULA [Suspect]
     Active Substance: NIRAPARIB
     Indication: Ovarian cancer
     Dosage: 300 MG, QD
     Route: 048
     Dates: start: 20200211
  2. ZEJULA [Suspect]
     Active Substance: NIRAPARIB
     Indication: Fallopian tube cancer
     Dosage: 200 MG, QD
     Route: 048
  3. ZEJULA [Suspect]
     Active Substance: NIRAPARIB
     Indication: Malignant peritoneal neoplasm
     Dosage: 100 MG, QD
     Route: 048
  4. ZEJULA [Suspect]
     Active Substance: NIRAPARIB
     Dosage: 200 MG, QD
     Route: 048
     Dates: end: 20200807

REACTIONS (6)
  - Cytopenia [Recovered/Resolved]
  - Hypertension [Not Recovered/Not Resolved]
  - Anxiety [Not Recovered/Not Resolved]
  - Tremor [Not Recovered/Not Resolved]
  - Fatigue [Not Recovered/Not Resolved]
  - Disease recurrence [Not Recovered/Not Resolved]
